FAERS Safety Report 7088878-7 (Version None)
Quarter: 2010Q4

REPORT INFORMATION
  Report Type: 
  Country: None (occurrence: None)
  Receive Date: 20101108
  Receipt Date: 20101027
  Transmission Date: 20110411
  Serious: Yes (Other)
  Sender: FDA-Public Use
  Company Number: HU-ROCHE-731937

PATIENT
  Sex: Female
  Weight: 94.5 kg

DRUGS (12)
  1. METHOXY POLYETHYLENE GLYCOL-EPOETIN BETA [Suspect]
     Dosage: LAST DOSE PRIOR TO SAE: 27 OCTOBER 2010
     Route: 042
     Dates: start: 20090415
  2. ALLOPURINOL [Concomitant]
  3. CALCIUM CARBONICUM [Concomitant]
  4. FUROSEMIDE [Concomitant]
     Dosage: 1 X 250 MG EVERY SECOND DAY.
  5. PYRIDOXIN [Concomitant]
  6. THIAMINE HCL [Concomitant]
  7. ASCORBIC ACID [Concomitant]
  8. CYANOCOBALAMIN [Concomitant]
  9. FOLIC ACID [Concomitant]
  10. LEVOTHYROXINE SODIUM [Concomitant]
  11. CALCITRIOL [Concomitant]
  12. GLICLAZIDE [Concomitant]

REACTIONS (1)
  - MULTIPLE MYELOMA [None]
